FAERS Safety Report 6908293-3 (Version None)
Quarter: 2010Q3

REPORT INFORMATION
  Report Type: 
  Country: None (occurrence: None)
  Receive Date: 20100716
  Receipt Date: 20100208
  Transmission Date: 20110219
  Serious: Yes (Death)
  Sender: FDA-Public Use
  Company Number: 2010017637

PATIENT
  Age: 84 Year
  Sex: Female

DRUGS (1)
  1. CELEBREX [Suspect]
     Dosage: 200 MG, 1X/DAY, ORAL
     Route: 048

REACTIONS (2)
  - LABELLED DRUG-DISEASE INTERACTION MEDICATION ERROR [None]
  - STEVENS-JOHNSON SYNDROME [None]
